FAERS Safety Report 21861364 (Version 1)
Quarter: 2023Q1

REPORT INFORMATION
  Report Type: Spontaneous
  Country: US (occurrence: US)
  Receive Date: 20230113
  Receipt Date: 20230113
  Transmission Date: 20230417
  Serious: No
  Sender: FDA-Public Use
  Company Number: US-IBSA PHARMA INC.-2022IBS000246

PATIENT

DRUGS (1)
  1. TIROSINT [Suspect]
     Active Substance: LEVOTHYROXINE SODIUM
     Indication: Hypothyroidism
     Dosage: 13 MICROGRAM, ONCE DAILY AS DIRECTED
     Route: 048
     Dates: start: 20220814

REACTIONS (3)
  - Eructation [Recovered/Resolved]
  - Chest discomfort [Recovered/Resolved]
  - Product after taste [Unknown]

NARRATIVE: CASE EVENT DATE: 20220814
